FAERS Safety Report 14783998 (Version 1)
Quarter: 2018Q2

REPORT INFORMATION
  Report Type: Spontaneous
  Country: IE (occurrence: IE)
  Receive Date: 20180420
  Receipt Date: 20180420
  Transmission Date: 20180711
  Serious: Yes (Life-Threatening)
  Sender: FDA-Public Use
  Company Number: IE-JNJFOC-20180425128

PATIENT
  Age: 87 Year
  Sex: Female
  Weight: 50 kg

DRUGS (10)
  1. MIRTAZAPINE. [Concomitant]
     Active Substance: MIRTAZAPINE
     Indication: AFFECTIVE DISORDER
     Route: 065
     Dates: start: 20170101, end: 20180224
  2. TRAMADOL/PARACETAMOL [Suspect]
     Active Substance: ACETAMINOPHEN\TRAMADOL
     Indication: ANALGESIC THERAPY
     Route: 048
     Dates: start: 20180224, end: 20180224
  3. RIVASTIGMINE. [Concomitant]
     Active Substance: RIVASTIGMINE
     Indication: DEMENTIA
     Route: 065
     Dates: start: 20100101, end: 20180224
  4. ADALAT CC [Concomitant]
     Active Substance: NIFEDIPINE
     Indication: RAYNAUD^S PHENOMENON
     Route: 065
     Dates: start: 20100101, end: 20180224
  5. PARACETAMOL [Concomitant]
     Active Substance: ACETAMINOPHEN
     Indication: ANALGESIC THERAPY
     Route: 065
     Dates: start: 20180217, end: 20180220
  6. ASPIRIN. [Concomitant]
     Active Substance: ASPIRIN
     Indication: PROPHYLAXIS
     Route: 065
     Dates: start: 20100101, end: 20180224
  7. PERINDOPRIL/INDAPAMIDE [Concomitant]
     Active Substance: INDAPAMIDE\PERINDOPRIL
     Indication: HYPERTENSION
     Route: 065
     Dates: start: 20170101, end: 20180224
  8. ATORVASTATIN [Concomitant]
     Active Substance: ATORVASTATIN
     Indication: DEMENTIA
     Route: 065
     Dates: start: 20100101, end: 20180224
  9. SOLPADEINE [Concomitant]
     Indication: ANALGESIC THERAPY
     Route: 065
     Dates: start: 20180222, end: 20180223
  10. FLUCLOXACILLIN [Concomitant]
     Active Substance: FLUCLOXACILLIN
     Indication: SKIN INFECTION
     Route: 065
     Dates: start: 20180223, end: 20180228

REACTIONS (6)
  - Myoclonus [Recovered/Resolved]
  - Disorientation [Recovered/Resolved]
  - Pulse abnormal [Recovered/Resolved]
  - Drooling [Recovered/Resolved]
  - Loss of consciousness [Recovered/Resolved]
  - Eye movement disorder [Recovered/Resolved]

NARRATIVE: CASE EVENT DATE: 20180224
